FAERS Safety Report 15744535 (Version 1)
Quarter: 2018Q4

REPORT INFORMATION
  Report Type: Spontaneous
  Country: US (occurrence: US)
  Receive Date: 20181220
  Receipt Date: 20181220
  Transmission Date: 20190205
  Serious: Yes (Other)
  Sender: FDA-Public Use
  Company Number: US-MALLINCKRODT-T201801108

PATIENT
  Age: 73 Year
  Sex: Female

DRUGS (3)
  1. FENTANYL TRANSDERMAL SYSTEM [Suspect]
     Active Substance: FENTANYL
     Indication: HYPERAESTHESIA
     Dosage: 75 MCG, EVERY 72 HOURS
     Route: 062
     Dates: start: 20180308, end: 201803
  2. FENTANYL TRANSDERMAL SYSTEM [Suspect]
     Active Substance: FENTANYL
     Indication: COMPLEX REGIONAL PAIN SYNDROME
  3. FENTANYL. [Suspect]
     Active Substance: FENTANYL
     Indication: PRODUCT USED FOR UNKNOWN INDICATION
     Dosage: 50 MCG EVERY 72 HOURS
     Route: 065

REACTIONS (7)
  - Psychomotor hyperactivity [Unknown]
  - Fatigue [Unknown]
  - Swelling [Not Recovered/Not Resolved]
  - Product use issue [Unknown]
  - Loss of consciousness [Unknown]
  - Fall [Unknown]
  - Product use complaint [Unknown]

NARRATIVE: CASE EVENT DATE: 201803
